FAERS Safety Report 25144606 (Version 1)
Quarter: 2025Q2

REPORT INFORMATION
  Report Type: Spontaneous
  Country: DE (occurrence: DE)
  Receive Date: 20250401
  Receipt Date: 20250401
  Transmission Date: 20250717
  Serious: Yes (Other)
  Sender: AUROBINDO
  Company Number: DE-EMB-M202308967-1

PATIENT
  Sex: Female
  Weight: 80 kg

DRUGS (5)
  1. QUETIAPINE [Suspect]
     Active Substance: QUETIAPINE
     Indication: Bipolar disorder
     Route: 048
     Dates: start: 202305, end: 202402
  2. VENLAFAXINE [Suspect]
     Active Substance: VENLAFAXINE HYDROCHLORIDE
     Indication: Bipolar disorder
     Dosage: 37.5 MILLIGRAM, ONCE A DAY (POSSIBLY LONGER)
     Route: 048
     Dates: start: 202305, end: 202401
  3. MIRTAZAPINE [Suspect]
     Active Substance: MIRTAZAPINE
     Indication: Bipolar disorder
     Dosage: 22.5 MILLIGRAM, ONCE A DAY (POSSIBLY LONGER, 15-22.5 MG/D)
     Route: 048
     Dates: start: 202305, end: 202402
  4. PERTUSSIS VACCINE [Concomitant]
     Active Substance: PERTUSSIS VACCINE
     Indication: Immunisation
     Route: 030
  5. RHOPHYLAC [Concomitant]
     Active Substance: HUMAN RHO(D) IMMUNE GLOBULIN
     Indication: Product used for unknown indication
     Dosage: 300 MICROGRAM, ONCE A DAY
     Route: 030
     Dates: start: 202312, end: 202312

REACTIONS (2)
  - Gestational diabetes [Recovered/Resolved]
  - Exposure during pregnancy [Unknown]
